FAERS Safety Report 5145248-6 (Version None)
Quarter: 2006Q4

REPORT INFORMATION
  Report Type: 
  Country: None (occurrence: None)
  Receive Date: 20060912
  Receipt Date: 20051019
  Transmission Date: 20070319
  Serious: Yes (Hospitalization)
  Sender: FDA-Public Use
  Company Number: 2005-BP-17792BP

PATIENT
  Age: 27 Year
  Sex: Male
  Weight: 79.83 kg

DRUGS (3)
  1. VIRAMUNE [Suspect]
     Indication: HIV INFECTION
     Dosage: 400 MG (200 MG,2 IN 1 D)
     Dates: start: 20050718, end: 20050928
  2. COMBIVIR [Suspect]
     Indication: HIV INFECTION
     Dosage: SEE TEXT (FIXED 1 PO BID),PO
     Route: 048
     Dates: start: 20050718, end: 20050928
  3. ACYCLOVIR [Concomitant]

REACTIONS (10)
  - ABDOMINAL PAIN [None]
  - ANOREXIA [None]
  - FATIGUE [None]
  - HEPATOTOXICITY [None]
  - JAUNDICE [None]
  - LIVER FUNCTION TEST ABNORMAL [None]
  - MALAISE [None]
  - MYALGIA [None]
  - NAUSEA [None]
  - VOMITING [None]
